FAERS Safety Report 20415707 (Version 1)
Quarter: 2022Q1

REPORT INFORMATION
  Report Type: Report from Study
  Country: ES (occurrence: ES)
  Receive Date: 20220202
  Receipt Date: 20220202
  Transmission Date: 20220423
  Serious: Yes (Other)
  Sender: FDA-Public Use
  Company Number: None

PATIENT
  Age: 60 Year
  Sex: Male

DRUGS (4)
  1. ROPINIROLE [Suspect]
     Active Substance: ROPINIROLE
     Indication: Product used for unknown indication
     Dosage: PILLS
     Route: 048
  2. RIVOTRIL [Suspect]
     Active Substance: CLONAZEPAM
     Indication: Product used for unknown indication
     Route: 048
     Dates: start: 2021
  3. CARBIDOPA\LEVODOPA [Suspect]
     Active Substance: CARBIDOPA\LEVODOPA
     Indication: Product used for unknown indication
     Dosage: DOSE MODIFICATION DONE
     Route: 050
     Dates: start: 2021
  4. AMANTADINE [Concomitant]
     Active Substance: AMANTADINE
     Dosage: PILLS
     Route: 048
     Dates: start: 2021

REACTIONS (6)
  - Withdrawal syndrome [Not Recovered/Not Resolved]
  - Parkinson^s disease [Unknown]
  - Walking aid user [Unknown]
  - Fall [Unknown]
  - Dyskinesia [Recovering/Resolving]
  - Hyperkinesia [Not Recovered/Not Resolved]

NARRATIVE: CASE EVENT DATE: 20210101
